FAERS Safety Report 22008936 (Version 1)
Quarter: 2023Q1

REPORT INFORMATION
  Report Type: Report from Study
  Country: US (occurrence: US)
  Receive Date: 20230220
  Receipt Date: 20230220
  Transmission Date: 20230418
  Serious: Yes (Hospitalization)
  Sender: FDA-Public Use
  Company Number: US-ABBVIE-4311525

PATIENT
  Sex: Female

DRUGS (2)
  1. SKYRIZI [Suspect]
     Active Substance: RISANKIZUMAB-RZAA
     Indication: Psoriatic arthropathy
     Dosage: WEEK 0, DISCONTINUED IN 2023
     Route: 058
     Dates: start: 20230102
  2. SKYRIZI [Suspect]
     Active Substance: RISANKIZUMAB-RZAA
     Indication: Psoriasis
     Dosage: WEEK 4 AND EVERY 12 WEEKS THEREAFTER, START IN 2023
     Route: 058

REACTIONS (4)
  - Bacterial infection [Unknown]
  - Pruritus [Unknown]
  - Arthralgia [Unknown]
  - Burning sensation [Unknown]
